FAERS Safety Report 4656327-1 (Version None)
Quarter: 2005Q2

REPORT INFORMATION
  Report Type: 
  Country: None (occurrence: None)
  Receive Date: 20050509
  Receipt Date: 20050407
  Transmission Date: 20051028
  Serious: No
  Sender: FDA-Public Use
  Company Number: US-GLAXOSMITHKLINE-A0553166A

PATIENT
  Sex: Female

DRUGS (10)
  1. AVANDAMET [Suspect]
     Dosage: 1TAB TWICE PER DAY
     Route: 048
  2. TIMOLOL MALEATE [Concomitant]
  3. LIPITOR [Concomitant]
  4. PROTONIX [Concomitant]
  5. LISINOPRIL [Concomitant]
  6. LACTOSE [Concomitant]
  7. KEFLEX [Concomitant]
  8. CALTRATE [Concomitant]
  9. NEURONTIN [Concomitant]
  10. CLONIDINE [Concomitant]

REACTIONS (1)
  - PAIN IN EXTREMITY [None]
